FAERS Safety Report 8767122 (Version 1)
Quarter: 2012Q4

REPORT INFORMATION
  Report Type: 
  Country: US (occurrence: US)
  Receive Date: 20120904
  Receipt Date: 20120904
  Transmission Date: 20130627
  Serious: No
  Sender: FDA-Public Use
  Company Number: US-PFIZER INC-2012213994

PATIENT
  Sex: Female
  Weight: 65.76 kg

DRUGS (2)
  1. LIPITOR [Suspect]
     Indication: BLOOD CHOLESTEROL INCREASED
     Dosage: 40 mg, daily
     Route: 048
  2. TOPROL XL [Concomitant]
     Indication: HYPERTENSION
     Dosage: 50 mg, daily

REACTIONS (1)
  - Constipation [Recovering/Resolving]
